FAERS Safety Report 10484628 (Version 2)
Quarter: 2014Q3

REPORT INFORMATION
  Report Type: Spontaneous
  Country: FR (occurrence: FR)
  Receive Date: 20140930
  Receipt Date: 20140930
  Transmission Date: 20150326
  Serious: Yes (Other)
  Sender: FDA-Public Use
  Company Number: FR-ABBVIE-14P-056-1279857-00

PATIENT
  Age: 58 Year
  Sex: Male
  Weight: 85 kg

DRUGS (1)
  1. HUMIRA [Suspect]
     Active Substance: ADALIMUMAB
     Indication: RHEUMATOID ARTHRITIS

REACTIONS (7)
  - Pain [Unknown]
  - Injection site pain [Unknown]
  - Flushing [Unknown]
  - Palpitations [Not Recovered/Not Resolved]
  - Fear of injection [Unknown]
  - Malaise [Not Recovered/Not Resolved]
  - Hyperhidrosis [Not Recovered/Not Resolved]
